FAERS Safety Report 4533636-8 (Version None)
Quarter: 2004Q4

REPORT INFORMATION
  Report Type: 
  Country: None (occurrence: None)
  Receive Date: 20041221
  Receipt Date: 20041209
  Transmission Date: 20050328
  Serious: Yes (Hospitalization)
  Sender: FDA-Public Use
  Company Number: US-GLAXOSMITHKLINE-A0536694A

PATIENT
  Age: 54 Year
  Sex: Male

DRUGS (4)
  1. NICORETTE [Suspect]
     Indication: TOBACCO ABUSE
     Dosage: 4MG TEN TIMES PER DAY
     Route: 002
     Dates: start: 19960601, end: 19960101
  2. NICORETTE (MINT) [Suspect]
     Indication: TOBACCO ABUSE
     Dosage: 4MG TEN TIMES PER DAY
     Route: 002
     Dates: start: 20041101, end: 20041208
  3. ASPIRIN [Concomitant]
     Indication: COAGULOPATHY
     Route: 048
  4. MULTI-VITAMIN [Concomitant]

REACTIONS (5)
  - ERYTHEMA [None]
  - HYPERTENSION [None]
  - OEDEMA PERIPHERAL [None]
  - PAIN IN EXTREMITY [None]
  - THROMBOSIS [None]
